APPROVED DRUG PRODUCT: REPAGLINIDE
Active Ingredient: REPAGLINIDE
Strength: 0.5MG
Dosage Form/Route: TABLET;ORAL
Application: A091517 | Product #001
Applicant: KENTON CHEMICALS AND PHARMACEUTICALS CORP
Approved: Apr 24, 2015 | RLD: No | RS: No | Type: DISCN